FAERS Safety Report 12493069 (Version 1)
Quarter: 2016Q2

REPORT INFORMATION
  Report Type: Report from Study
  Country: AR (occurrence: AR)
  Receive Date: 20160623
  Receipt Date: 20160623
  Transmission Date: 20160815
  Serious: Yes (Hospitalization)
  Sender: FDA-Public Use
  Company Number: AR-INCYTE CORPORATION-2016IN003638

PATIENT
  Sex: Female

DRUGS (1)
  1. JAKAFI [Suspect]
     Active Substance: RUXOLITINIB
     Indication: POLYCYTHAEMIA VERA
     Dosage: 20 MG, BID (IN THE MORNING AND IN THE AFTERNOON)
     Route: 065
     Dates: start: 20160323

REACTIONS (4)
  - Poverty of speech [Recovering/Resolving]
  - Disorganised speech [Recovering/Resolving]
  - Intestinal obstruction [Recovering/Resolving]
  - Disorientation [Recovering/Resolving]
